FAERS Safety Report 24221474 (Version 1)
Quarter: 2024Q3

REPORT INFORMATION
  Report Type: Spontaneous
  Country: IL (occurrence: IL)
  Receive Date: 20240819
  Receipt Date: 20240819
  Transmission Date: 20241017
  Serious: Yes (Other)
  Sender: BRISTOL MYERS SQUIBB
  Company Number: IL-BRISTOL-MYERS SQUIBB COMPANY-2024-128458

PATIENT
  Age: 63 Year
  Sex: Female

DRUGS (1)
  1. NIVOLUMAB [Suspect]
     Active Substance: NIVOLUMAB
     Indication: Non-small cell lung cancer
     Dosage: DOSE : 360MG;     FREQ : Q3W

REACTIONS (1)
  - Lung disorder [Unknown]
